FAERS Safety Report 15016495 (Version 2)
Quarter: 2018Q2

REPORT INFORMATION
  Report Type: Spontaneous
  Country: CA (occurrence: CA)
  Receive Date: 20180615
  Receipt Date: 20180619
  Transmission Date: 20180711
  Serious: Yes (Other)
  Sender: FDA-Public Use
  Company Number: CA-JNJFOC-20180612002

PATIENT
  Age: 5 Decade
  Sex: Female
  Weight: 43 kg

DRUGS (8)
  1. METHOTREXATE. [Concomitant]
     Active Substance: METHOTREXATE
     Route: 048
  2. HYDROXYCHLOROQUINE [Concomitant]
     Active Substance: HYDROXYCHLOROQUINE
     Route: 048
  3. MORPHINE [Concomitant]
     Active Substance: MORPHINE
     Dosage: SHORT ACTING
     Route: 065
  4. PLAQUENIL [Concomitant]
     Active Substance: HYDROXYCHLOROQUINE SULFATE
     Route: 048
  5. GABAPENTIN. [Concomitant]
     Active Substance: GABAPENTIN
     Route: 065
  6. SIMPONI [Suspect]
     Active Substance: GOLIMUMAB
     Indication: PRODUCT USED FOR UNKNOWN INDICATION
     Route: 058
     Dates: start: 2016, end: 2017
  7. LEFLUNOMIDE. [Concomitant]
     Active Substance: LEFLUNOMIDE
     Route: 048
  8. MORPHINE [Concomitant]
     Active Substance: MORPHINE
     Dosage: LONG ACTING
     Route: 065

REACTIONS (4)
  - Inflammation [Unknown]
  - Drug ineffective [Unknown]
  - Surgery [Unknown]
  - Intervertebral disc degeneration [Unknown]
